FAERS Safety Report 26069506 (Version 1)
Quarter: 2025Q4

REPORT INFORMATION
  Report Type: Spontaneous
  Country: AU (occurrence: AU)
  Receive Date: 20251120
  Receipt Date: 20251120
  Transmission Date: 20260118
  Serious: Yes (Other)
  Sender: RANBAXY
  Company Number: AU-SUN PHARMACEUTICAL INDUSTRIES LTD-2025RR-536267

PATIENT
  Age: 24 Year
  Sex: Male

DRUGS (1)
  1. ISOTRETINOIN [Suspect]
     Active Substance: ISOTRETINOIN
     Indication: Acne
     Dosage: 3 COURSES
     Route: 065

REACTIONS (3)
  - Hepatic steatosis [Unknown]
  - Urticaria [Recovered/Resolved]
  - Lip swelling [Unknown]
